FAERS Safety Report 4908723-2 (Version None)
Quarter: 2006Q1

REPORT INFORMATION
  Report Type: 
  Country: None (occurrence: None)
  Receive Date: 20060210
  Receipt Date: 20051031
  Transmission Date: 20060701
  Serious: No
  Sender: FDA-Public Use
  Company Number: US-GLAXOSMITHKLINE-A0580281A

PATIENT
  Age: 59 Year
  Sex: Male

DRUGS (4)
  1. PAXIL CR [Suspect]
     Indication: DEPRESSION
     Dosage: 25MG PER DAY
     Route: 048
     Dates: start: 20050101
  2. PAXIL [Suspect]
     Indication: DEPRESSION
     Dosage: 20MG PER DAY
     Route: 048
     Dates: start: 20050101
  3. EVISTA [Concomitant]
  4. PAXIL [Concomitant]
     Dosage: 20MG PER DAY
     Route: 048

REACTIONS (3)
  - ANXIETY [None]
  - DISCOMFORT [None]
  - HYPERHIDROSIS [None]
